FAERS Safety Report 10334111 (Version 1)
Quarter: 2014Q3

REPORT INFORMATION
  Report Type: Spontaneous
  Country: US (occurrence: None)
  Receive Date: 20140721
  Receipt Date: 20140721
  Transmission Date: 20150326
  Serious: Yes (Other)
  Sender: FDA-Public Use
  Company Number: None

PATIENT
  Age: 37 Year
  Sex: Female
  Weight: 113.4 kg

DRUGS (1)
  1. MIRENA [Suspect]
     Active Substance: LEVONORGESTREL

REACTIONS (4)
  - Thrombosis [None]
  - Dysmenorrhoea [None]
  - Menstrual disorder [None]
  - Vaginal haemorrhage [None]

NARRATIVE: CASE EVENT DATE: 20140719
